FAERS Safety Report 15877157 (Version 3)
Quarter: 2019Q1

REPORT INFORMATION
  Report Type: Spontaneous
  Country: BE (occurrence: BE)
  Receive Date: 20190128
  Receipt Date: 20190318
  Transmission Date: 20190417
  Serious: Yes (Other)
  Sender: FDA-Public Use
  Company Number: BE-SA-2019SA012485

PATIENT
  Age: 52 Year
  Sex: Male

DRUGS (14)
  1. RANITIDINE. [Suspect]
     Active Substance: RANITIDINE
     Indication: HYPERGAMMAGLOBULINAEMIA BENIGN MONOCLONAL
  2. THEOPHYLLINE [Suspect]
     Active Substance: THEOPHYLLINE ANHYDROUS
     Indication: CAPILLARY LEAK SYNDROME
     Dosage: 400 MG, UNK
     Route: 065
  3. DEXAMETHASONE. [Suspect]
     Active Substance: DEXAMETHASONE
     Indication: CAPILLARY LEAK SYNDROME
     Dosage: UNK UNK, UNK
     Route: 065
  4. VELCADE [Suspect]
     Active Substance: BORTEZOMIB
     Indication: CAPILLARY LEAK SYNDROME
     Dosage: 1 UNK, QCY LYOPHILIZED POWDER
     Route: 065
  5. ATORVASTATIN [Concomitant]
     Active Substance: ATORVASTATIN
     Indication: DYSLIPIDAEMIA
     Dosage: UNK
     Route: 065
  6. MONTELUKAST [Suspect]
     Active Substance: MONTELUKAST SODIUM
     Indication: CAPILLARY LEAK SYNDROME
     Dosage: 10 MG, UNK
     Route: 065
  7. MONTELUKAST [Suspect]
     Active Substance: MONTELUKAST SODIUM
     Indication: HYPERGAMMAGLOBULINAEMIA BENIGN MONOCLONAL
  8. CYCLOPHOSPHAMIDE. [Suspect]
     Active Substance: CYCLOPHOSPHAMIDE
     Indication: HYPERGAMMAGLOBULINAEMIA BENIGN MONOCLONAL
  9. RAMIPRIL. [Concomitant]
     Active Substance: RAMIPRIL
     Indication: HYPERTENSION
     Dosage: 10 MG
     Route: 065
  10. CETIRIZINE [Concomitant]
     Active Substance: CETIRIZINE HYDROCHLORIDE
     Indication: HYPERGAMMAGLOBULINAEMIA BENIGN MONOCLONAL
     Dosage: 10 MG
     Route: 065
  11. RANITIDINE. [Suspect]
     Active Substance: RANITIDINE
     Indication: CAPILLARY LEAK SYNDROME
     Dosage: 300 MG, UNK
     Route: 065
  12. CYCLOPHOSPHAMIDE. [Suspect]
     Active Substance: CYCLOPHOSPHAMIDE
     Indication: CAPILLARY LEAK SYNDROME
     Dosage: 1 UNSPECIFIED FOR 5 CYCLES
     Route: 065
  13. VELCADE [Suspect]
     Active Substance: BORTEZOMIB
     Indication: HYPERGAMMAGLOBULINAEMIA BENIGN MONOCLONAL
  14. CHOLECALCIFEROL [Concomitant]
     Active Substance: CHOLECALCIFEROL
     Indication: VITAMIN D DEFICIENCY
     Dosage: 25000 IU, UNK
     Route: 065

REACTIONS (9)
  - Diabetes mellitus [Recovering/Resolving]
  - Pain [Unknown]
  - Polyneuropathy [Recovering/Resolving]
  - Vision blurred [Recovering/Resolving]
  - Off label use [Unknown]
  - Fatigue [Recovering/Resolving]
  - Product use in unapproved indication [Unknown]
  - Drug ineffective [Unknown]
  - Dyskinesia [Unknown]
